FAERS Safety Report 23143896 (Version 1)
Quarter: 2023Q4

REPORT INFORMATION
  Report Type: Spontaneous
  Country: US (occurrence: US)
  Receive Date: 20231103
  Receipt Date: 20231103
  Transmission Date: 20240110
  Serious: No
  Sender: FDA-Public Use
  Company Number: US-BRISTOL-MYERS SQUIBB COMPANY-2023-156809

PATIENT
  Age: 82 Year
  Sex: Female
  Weight: 51.26 kg

DRUGS (2)
  1. REVLIMID [Suspect]
     Active Substance: LENALIDOMIDE
     Indication: Plasma cell myeloma
     Dosage: DOSE : 20 MG; 5 MG;     FREQ : ONE DAILY, 14 DAYS ON, 14 DAYS OFF; ONE DAILY, QUANTITY 28
     Route: 048
     Dates: start: 202002
  2. REVLIMID [Suspect]
     Active Substance: LENALIDOMIDE
     Route: 048
     Dates: start: 202301

REACTIONS (4)
  - Weight decreased [Unknown]
  - Swelling [Unknown]
  - Coronavirus infection [Recovering/Resolving]
  - Off label use [Unknown]

NARRATIVE: CASE EVENT DATE: 20231025
